FAERS Safety Report 12049736 (Version 1)
Quarter: 2016Q1

REPORT INFORMATION
  Report Type: Spontaneous
  Country: US (occurrence: None)
  Receive Date: 20160208
  Receipt Date: 20160208
  Transmission Date: 20160526
  Serious: Yes (Other)
  Sender: FDA-Public Use
  Company Number: None

PATIENT
  Age: 43 Year
  Sex: Female
  Weight: 54.43 kg

DRUGS (4)
  1. ALEVE [Concomitant]
     Active Substance: NAPROXEN SODIUM
  2. TOPIRAMATE. [Suspect]
     Active Substance: TOPIRAMATE
     Indication: MIGRAINE
     Dosage: 1 PILL DAILY -- TAKEN BY MOUTH
     Route: 048
     Dates: start: 20151027, end: 20160120
  3. AMBIEN [Concomitant]
     Active Substance: ZOLPIDEM TARTRATE
  4. SELEXA [Concomitant]

REACTIONS (4)
  - Vision blurred [None]
  - Visual field defect [None]
  - Balance disorder [None]
  - Impaired driving ability [None]

NARRATIVE: CASE EVENT DATE: 20160120
